FAERS Safety Report 5253921-4 (Version None)
Quarter: 2007Q1

REPORT INFORMATION
  Report Type: 
  Country: None (occurrence: None)
  Receive Date: 20070228
  Receipt Date: 20070228
  Transmission Date: 20070707
  Serious: Yes (Hospitalization)
  Sender: FDA-Public Use
  Company Number: None

PATIENT
  Age: 46 Year
  Sex: Female
  Weight: 84.369 kg

DRUGS (2)
  1. APREPITANT, MERCK + CO CAPSULES, 40 MG [Suspect]
     Indication: PROCEDURAL NAUSEA
     Dosage: 40 MG ONCE PO
     Route: 048
     Dates: start: 20070205
  2. APREPITANT, MERCK + CO CAPSULES, 40 MG [Suspect]
     Indication: PROCEDURAL VOMITING
     Dosage: 40 MG ONCE PO
     Route: 048
     Dates: start: 20070205

REACTIONS (4)
  - CHEST DISCOMFORT [None]
  - POST PROCEDURAL COMPLICATION [None]
  - RESPIRATORY DEPRESSION [None]
  - WHEEZING [None]
